FAERS Safety Report 7011816-X (Version None)
Quarter: 2010Q3

REPORT INFORMATION
  Report Type: 
  Country: None (occurrence: None)
  Receive Date: 20100923
  Receipt Date: 20090914
  Transmission Date: 20110219
  Serious: No
  Sender: FDA-Public Use
  Company Number: US-WYE-H10998509

PATIENT
  Sex: Female
  Weight: 71.73 kg

DRUGS (3)
  1. PREMARIN [Suspect]
     Indication: VULVOVAGINAL DRYNESS
     Dosage: APPLIES ONE HALF INCH EXTERNALLY
     Route: 061
     Dates: start: 20040101
  2. PREMARIN [Suspect]
     Indication: VULVOVAGINAL PRURITUS
  3. FISH OIL [Concomitant]

REACTIONS (2)
  - DYSGEUSIA [None]
  - EXPIRED DRUG ADMINISTERED [None]
